FAERS Safety Report 6279441-6 (Version None)
Quarter: 2009Q3

REPORT INFORMATION
  Report Type: 
  Country: None (occurrence: None)
  Receive Date: 20090723
  Receipt Date: 20090714
  Transmission Date: 20100115
  Serious: Yes (Hospitalization, Other)
  Sender: FDA-Public Use
  Company Number: US-CELGENEUS-163-50794-09070107

PATIENT
  Sex: Male
  Weight: 70.9 kg

DRUGS (53)
  1. VIDAZA [Suspect]
     Indication: METASTATIC SQUAMOUS CELL CARCINOMA
     Route: 051
     Dates: start: 20090216, end: 20090602
  2. TARCEVA [Suspect]
     Indication: METASTATIC SQUAMOUS CELL CARCINOMA
     Route: 048
     Dates: start: 20090216, end: 20090614
  3. TOBRADEX [Concomitant]
     Indication: ENDOPHTHALMITIS
     Route: 047
     Dates: start: 20090228, end: 20090302
  4. DURAGESIC-100 [Concomitant]
     Indication: PAIN
     Route: 062
     Dates: start: 20090518, end: 20090601
  5. ACETAMINOPHEN AND CODEINE PHOSPHATE [Concomitant]
     Indication: CHEST PAIN
     Dosage: 300MG/15MG
     Route: 048
     Dates: start: 20090202, end: 20090302
  6. ACETAMINOPHEN AND CODEINE PHOSPHATE [Concomitant]
     Dosage: 300MG/15MG
     Route: 048
     Dates: start: 20090306, end: 20090309
  7. HUMALOG [Concomitant]
     Indication: TYPE 2 DIABETES MELLITUS
     Dosage: 100U/ML, 2-4 UNITS SLIDING SCALE
     Route: 050
     Dates: start: 20081020
  8. LANTUS [Concomitant]
     Indication: TYPE 2 DIABETES MELLITUS
     Dosage: 20 UNITS
     Route: 058
     Dates: start: 20080902
  9. PROTONIX [Concomitant]
     Indication: DYSPHAGIA
     Route: 048
     Dates: start: 20041102
  10. ZOFRAN [Concomitant]
     Indication: NAUSEA
     Route: 048
     Dates: start: 20081220, end: 20090309
  11. ZOFRAN [Concomitant]
     Indication: VOMITING
     Route: 048
     Dates: start: 20090429, end: 20090430
  12. ZOFRAN [Concomitant]
     Route: 051
     Dates: start: 20090623
  13. ROBITUSSIN [Concomitant]
     Indication: COUGH
     Route: 048
     Dates: start: 20090202
  14. ROBITUSSIN [Concomitant]
  15. COLACE [Concomitant]
     Indication: CONSTIPATION
     Route: 048
     Dates: start: 20081213
  16. MOM [Concomitant]
     Indication: CONSTIPATION
     Route: 048
     Dates: start: 20090624
  17. LEXAPRO [Concomitant]
     Route: 048
     Dates: start: 20081213, end: 20090518
  18. LEXAPRO [Concomitant]
     Indication: ANXIETY
  19. REMERON [Concomitant]
     Route: 048
     Dates: start: 20090518
  20. REMERON [Concomitant]
     Indication: ANXIETY
  21. DIAZEPAM [Concomitant]
     Indication: INSOMNIA
     Route: 048
     Dates: start: 20081009
  22. BENADRYL [Concomitant]
     Route: 048
     Dates: start: 20081213
  23. BENADRYL [Concomitant]
     Route: 051
     Dates: start: 20090626, end: 20090626
  24. BENADRYL [Concomitant]
     Indication: PREMEDICATION
  25. OYST-CAL-D [Concomitant]
     Indication: FATIGUE
     Dosage: 500MG-200 IU
     Route: 048
     Dates: start: 20070808
  26. PERCOCET [Concomitant]
     Indication: BACK PAIN
     Dosage: 5/325MG
     Route: 048
     Dates: start: 20090302
  27. FENTANYL-100 [Concomitant]
     Indication: BACK PAIN
     Route: 062
     Dates: start: 20090601, end: 20090603
  28. FENTANYL-100 [Concomitant]
     Route: 062
     Dates: start: 20090601, end: 20090603
  29. FENTANYL-100 [Concomitant]
     Route: 061
     Dates: start: 20090601
  30. MORPHINE [Concomitant]
     Indication: BACK PAIN
     Route: 048
     Dates: start: 20090601, end: 20090601
  31. MORPHINE [Concomitant]
     Indication: CHEST PAIN
     Dosage: 10MG/5ML
     Route: 048
     Dates: start: 20090602, end: 20090602
  32. MORPHINE [Concomitant]
     Dosage: 2-4MG
     Route: 051
     Dates: start: 20090623
  33. MORPHINE [Concomitant]
     Route: 048
     Dates: start: 20090306
  34. PREDNISONE ACETATE [Concomitant]
     Indication: ENDOPHTHALMITIS
     Dosage: 1 DROP LEFT EYE
     Dates: start: 20090228, end: 20090320
  35. HOMATROPINE [Concomitant]
     Indication: ENDOPHTHALMITIS
     Dosage: 1 DROP LEFT EYE
     Dates: start: 20090228, end: 20090320
  36. ZYMAR [Concomitant]
     Indication: ENDOPHTHALMITIS
     Dosage: 1 DROP LEFT EYE
     Dates: start: 20090228, end: 20090320
  37. LORTAB [Concomitant]
     Indication: PAIN
     Dosage: 500/7.5MG/5ML
     Route: 048
     Dates: start: 20090505
  38. REGLAN [Concomitant]
     Indication: NAUSEA
     Route: 048
     Dates: start: 20090327
  39. DOXYCYCLINE HYCLATE [Concomitant]
     Indication: RASH
     Route: 048
     Dates: start: 20090420, end: 20090427
  40. DOXYCYCLINE HYCLATE [Concomitant]
     Indication: CELLULITIS
     Route: 048
     Dates: start: 20090617, end: 20090619
  41. DOXYCYCLINE HYCLATE [Concomitant]
     Indication: FOLLICULITIS
  42. HYDROCORTISONE [Concomitant]
     Indication: RASH
     Route: 061
     Dates: start: 20090420, end: 20090504
  43. SCOPOLAMINE [Concomitant]
     Indication: DIZZINESS
     Route: 062
     Dates: start: 20090612, end: 20090619
  44. DOXYCYCLINE [Concomitant]
     Indication: DRUG USE FOR UNKNOWN INDICATION
     Dosage: 50/5ML
     Route: 065
     Dates: start: 20090612, end: 20090619
  45. PROCHLORPERAZINE [Concomitant]
     Indication: NAUSEA
     Route: 051
     Dates: start: 20090623, end: 20090627
  46. PROCHLORPERAZINE [Concomitant]
     Route: 048
     Dates: start: 20090626
  47. D5W+NACL 0.9% [Concomitant]
     Route: 051
     Dates: start: 20090624, end: 20090624
  48. INSULIN ASPART [Concomitant]
     Dosage: 100 UNITS
     Route: 058
     Dates: start: 20090623, end: 20090624
  49. MAGNESIUM SULFATE [Concomitant]
     Route: 051
     Dates: start: 20090623, end: 20090623
  50. RED BLOOD CELLS [Concomitant]
     Dosage: 2 UNITS
     Route: 051
     Dates: start: 20090626, end: 20090626
  51. RED BLOOD CELLS [Concomitant]
  52. LANTUS [Concomitant]
     Indication: TYPE 2 DIABETES MELLITUS
     Dosage: 100 UNITS
     Dates: start: 20090624, end: 20090624
  53. MORPHINE SULFATE [Concomitant]
     Indication: RIB FRACTURE
     Route: 065
     Dates: start: 20090529, end: 20090529

REACTIONS (5)
  - DEHYDRATION [None]
  - FAILURE TO THRIVE [None]
  - HYPOGLYCAEMIA [None]
  - HYPOTENSION [None]
  - PNEUMONIA ASPIRATION [None]
